FAERS Safety Report 20548206 (Version 1)
Quarter: 2022Q1

REPORT INFORMATION
  Report Type: Report from Study
  Country: US (occurrence: US)
  Receive Date: 20220303
  Receipt Date: 20220303
  Transmission Date: 20220423
  Serious: Yes (Hospitalization, Other)
  Sender: FDA-Public Use
  Company Number: US-TAKEDA-US201621149

PATIENT
  Age: 60 Year
  Sex: Female
  Weight: 58.5 kg

DRUGS (12)
  1. TEDUGLUTIDE [Suspect]
     Active Substance: TEDUGLUTIDE
     Indication: Short-bowel syndrome
     Dosage: 1.5 MILLIGRAM, 1X/DAY:QD
     Route: 065
     Dates: start: 20150522, end: 20191028
  2. TEDUGLUTIDE [Suspect]
     Active Substance: TEDUGLUTIDE
     Indication: Short-bowel syndrome
     Dosage: 1.5 MILLIGRAM, 1X/DAY:QD
     Route: 065
     Dates: start: 20150522, end: 20191028
  3. TEDUGLUTIDE [Suspect]
     Active Substance: TEDUGLUTIDE
     Indication: Short-bowel syndrome
     Dosage: 1.5 MILLIGRAM, 1X/DAY:QD
     Route: 065
     Dates: start: 20150522, end: 20191028
  4. TEDUGLUTIDE [Suspect]
     Active Substance: TEDUGLUTIDE
     Indication: Short-bowel syndrome
     Dosage: 1.5 MILLIGRAM, 1X/DAY:QD
     Route: 065
     Dates: start: 20150522, end: 20191028
  5. FENTANYL [Concomitant]
     Active Substance: FENTANYL
     Indication: Abdominal pain
  6. HYDROMORPHONE HCL [Concomitant]
     Active Substance: HYDROMORPHONE HYDROCHLORIDE
     Indication: Abdominal pain
  7. NORTRIPTYLINE [Concomitant]
     Active Substance: NORTRIPTYLINE
     Indication: Abdominal pain
  8. METRONIDAZOLE [Concomitant]
     Active Substance: METRONIDAZOLE
     Indication: Fistula
  9. VANCOMYCIN [Concomitant]
     Active Substance: VANCOMYCIN
     Indication: Vascular device infection
     Dosage: 1 GRAM, BID
     Route: 042
     Dates: start: 20160414, end: 20160418
  10. CEFEPIME [Concomitant]
     Active Substance: CEFEPIME HYDROCHLORIDE
     Indication: Vascular device infection
     Dosage: 2 GRAM, QID
     Route: 042
     Dates: start: 20160414, end: 20160421
  11. DAPTOMYCIN [Concomitant]
     Active Substance: DAPTOMYCIN
     Indication: Vascular device infection
     Dosage: 10 MILLIGRAM/KILOGRAM, QD
     Route: 042
     Dates: start: 20160418, end: 20160501
  12. FLAGYL [Concomitant]
     Active Substance: METRONIDAZOLE\METRONIDAZOLE HYDROCHLORIDE
     Indication: Vascular device infection
     Dosage: 500 MILLIGRAM, QID
     Route: 042
     Dates: start: 20160414, end: 20160421

REACTIONS (2)
  - Device related sepsis [Recovered/Resolved]
  - Cholecystitis acute [Recovered/Resolved]

NARRATIVE: CASE EVENT DATE: 20160414
